FAERS Safety Report 6739038-8 (Version None)
Quarter: 2010Q2

REPORT INFORMATION
  Report Type: 
  Country: None (occurrence: None)
  Receive Date: 20100524
  Receipt Date: 20100524
  Transmission Date: 20101027
  Serious: Yes (Hospitalization, Other)
  Sender: FDA-Public Use
  Company Number: None

PATIENT
  Age: 69 Year
  Sex: Female
  Weight: 40.8237 kg

DRUGS (2)
  1. NOXAFIL [Suspect]
     Indication: ASPERGILLOSIS
     Dosage: 40 MG -5ML- EVER 6 HRS PO
     Route: 048
     Dates: start: 20100107, end: 20100509
  2. NOXAFIL [Suspect]
     Indication: ASPERGILLOSIS
     Dosage: 40 MG -5ML- EVER 6 HRS PO
     Route: 048
     Dates: start: 20100513, end: 20100518

REACTIONS (6)
  - ASTHENIA [None]
  - FALL [None]
  - FEELING DRUNK [None]
  - GAIT DISTURBANCE [None]
  - INJURY [None]
  - LOSS OF CONSCIOUSNESS [None]
